FAERS Safety Report 9687832 (Version 1)
Quarter: 2013Q4

REPORT INFORMATION
  Report Type: Spontaneous
  Country: GB (occurrence: None)
  Receive Date: 20131112
  Receipt Date: 20131112
  Transmission Date: 20140711
  Serious: Yes (Other)
  Sender: FDA-Public Use
  Company Number: AUR-APL-2013-09271

PATIENT
  Age: 82 Year
  Sex: Male
  Weight: 78.46 kg

DRUGS (1)
  1. AMLODIPINE [Suspect]
     Indication: HYPERTENSION
     Route: 048

REACTIONS (5)
  - Myalgia [None]
  - Arthralgia [None]
  - Lethargy [None]
  - Muscle spasms [None]
  - Muscle spasms [None]
